FAERS Safety Report 21703397 (Version 1)
Quarter: 2022Q4

REPORT INFORMATION
  Report Type: Spontaneous
  Country: US (occurrence: US)
  Receive Date: 20221209
  Receipt Date: 20221209
  Transmission Date: 20230113
  Serious: No
  Sender: FDA-Public Use
  Company Number: US-GSKCCFUS-Case-01573552_AE-88927

PATIENT
  Sex: Male

DRUGS (1)
  1. FLOVENT DISKUS [Suspect]
     Active Substance: FLUTICASONE PROPIONATE
     Indication: Lung disorder
     Dosage: 1 NCI, BID 250MCG
     Route: 055
     Dates: start: 20221205

REACTIONS (3)
  - Wrong technique in device usage process [Unknown]
  - Product dose confusion [Unknown]
  - Product prescribing issue [Unknown]
